FAERS Safety Report 13693496 (Version 1)
Quarter: 2017Q2

REPORT INFORMATION
  Report Type: Spontaneous
  Country: FR (occurrence: FR)
  Receive Date: 20170627
  Receipt Date: 20170627
  Transmission Date: 20170830
  Serious: Yes (Life-Threatening)
  Sender: FDA-Public Use
  Company Number: FR-ROCHE-1940764

PATIENT
  Age: 66 Year
  Sex: Male

DRUGS (8)
  1. TRIATEC (CODEINE PHOSPHATE/PARACETAMOL) [Suspect]
     Active Substance: ACETAMINOPHEN\CODEINE PHOSPHATE
     Indication: PRODUCT USED FOR UNKNOWN INDICATION
     Route: 048
  2. ACTILYSE [Suspect]
     Active Substance: ALTEPLASE
     Indication: INFARCTION
     Route: 042
     Dates: start: 20170413, end: 20170413
  3. AMLODIPINE [Concomitant]
     Active Substance: AMLODIPINE BESYLATE
  4. JANUMET [Concomitant]
     Active Substance: METFORMIN HYDROCHLORIDE\SITAGLIPTIN PHOSPHATE
  5. AMAREL [Concomitant]
     Active Substance: GLIMEPIRIDE
  6. TAHOR [Concomitant]
     Active Substance: ATORVASTATIN CALCIUM
  7. LASILIX [Concomitant]
     Active Substance: FUROSEMIDE
  8. KARDEGIC [Concomitant]
     Active Substance: ASPIRIN LYSINE

REACTIONS (3)
  - Oxygen saturation decreased [Recovered/Resolved]
  - Angioedema [Recovered/Resolved]
  - Tongue oedema [Recovered/Resolved]

NARRATIVE: CASE EVENT DATE: 20170413
